FAERS Safety Report 6598930-8 (Version None)
Quarter: 2010Q1

REPORT INFORMATION
  Report Type: 
  Country: None (occurrence: None)
  Receive Date: 20100224
  Receipt Date: 20090305
  Transmission Date: 20100710
  Serious: No
  Sender: FDA-Public Use
  Company Number: US-BRISTOL-MYERS SQUIBB COMPANY-14536288

PATIENT

DRUGS (1)
  1. METFORMIN HCL [Suspect]

REACTIONS (3)
  - DYSGEUSIA [None]
  - MALAISE [None]
  - NAUSEA [None]
